FAERS Safety Report 6671027-4 (Version None)
Quarter: 2010Q2

REPORT INFORMATION
  Report Type: 
  Country: None (occurrence: None)
  Receive Date: 20100407
  Receipt Date: 20100331
  Transmission Date: 20101027
  Serious: Yes (Hospitalization, Other)
  Sender: FDA-Public Use
  Company Number: PHEH2010US02670

PATIENT
  Sex: Female

DRUGS (9)
  1. EXJADE [Suspect]
     Indication: MYELODYSPLASTIC SYNDROME
     Dosage: 500 MG, BID
     Route: 048
     Dates: start: 20070901, end: 20091216
  2. ENABLEX [Concomitant]
  3. VITAMIN E [Concomitant]
  4. HYDROCORTISONE CREAM [Concomitant]
  5. SYNTHROID [Concomitant]
  6. BENICAR [Concomitant]
  7. CLARITIN [Concomitant]
  8. PROTONIX [Concomitant]
  9. TEMAZEPAM [Concomitant]

REACTIONS (6)
  - CELLULITIS [None]
  - DIARRHOEA [None]
  - ECZEMA [None]
  - PRURITUS [None]
  - RASH GENERALISED [None]
  - SKIN DISORDER [None]
